FAERS Safety Report 5126329-X (Version None)
Quarter: 2006Q4

REPORT INFORMATION
  Report Type: 
  Country: None (occurrence: None)
  Receive Date: 20061010
  Receipt Date: 20061004
  Transmission Date: 20070319
  Serious: Yes (Other)
  Sender: FDA-Public Use
  Company Number: 2006120368

PATIENT
  Sex: Female

DRUGS (1)
  1. LISTERINE (MENTHOL, METHYL SALICYLATE, EUCALYPTOL, THYMOL) [Suspect]
     Indication: FEELING DRUNK
     Dosage: ORAL
     Route: 048
     Dates: start: 20061004, end: 20061004

REACTIONS (1)
  - INTENTIONAL DRUG MISUSE [None]
